FAERS Safety Report 18927390 (Version 1)
Quarter: 2021Q1

REPORT INFORMATION
  Report Type: Spontaneous
  Country: US (occurrence: US)
  Receive Date: 20210222
  Receipt Date: 20210222
  Transmission Date: 20210420
  Serious: Yes (Hospitalization)
  Sender: FDA-Public Use
  Company Number: None

PATIENT
  Age: 63 Year
  Sex: Female

DRUGS (1)
  1. H.P. ACTHAR [Suspect]
     Active Substance: CORTICOTROPIN
     Dosage: ?          OTHER DOSE:80 UNITS;OTHER FREQUENCY:OTHER;?
     Route: 058
     Dates: start: 202102

REACTIONS (1)
  - Mental status changes [None]

NARRATIVE: CASE EVENT DATE: 20210222
